FAERS Safety Report 21533646 (Version 1)
Quarter: 2022Q4

REPORT INFORMATION
  Report Type: Spontaneous
  Country: US (occurrence: None)
  Receive Date: 20221031
  Receipt Date: 20221031
  Transmission Date: 20230113
  Serious: No
  Sender: FDA-Public Use
  Company Number: None

PATIENT
  Age: 76 Year
  Sex: Male
  Weight: 87.54 kg

DRUGS (14)
  1. ABIRATERONE [Suspect]
     Active Substance: ABIRATERONE
     Indication: Prostate cancer
     Dosage: FREQUENCY : DAILY;?
     Route: 048
  2. PREDNISONE [Suspect]
     Active Substance: PREDNISONE
     Indication: Prostate cancer
  3. CANDESARTAN [Concomitant]
     Active Substance: CANDESARTAN
  4. CETIRIZINE [Concomitant]
     Active Substance: CETIRIZINE HYDROCHLORIDE
  5. COENZYME Q10 [Concomitant]
     Active Substance: DIETARY SUPPLEMENT\UBIDECARENONE
  6. GEMTESA [Concomitant]
     Active Substance: VIBEGRON
  7. LUPRON [Concomitant]
     Active Substance: LEUPROLIDE ACETATE
  8. MINERALS\VITAMINS [Concomitant]
     Active Substance: MINERALS\VITAMINS
  9. PRIMIDONE [Concomitant]
     Active Substance: PRIMIDONE
  10. PROPRANOLOL [Concomitant]
  11. ROSUVASTATIN [Concomitant]
     Active Substance: ROSUVASTATIN
  12. TROSPIUM [Concomitant]
     Active Substance: TROSPIUM
  13. VITAMIN B12 [Concomitant]
     Active Substance: CYANOCOBALAMIN
  14. VITAMIN D2 [Concomitant]
     Active Substance: ERGOCALCIFEROL

REACTIONS (2)
  - Hepatic enzyme increased [None]
  - Therapy interrupted [None]
